FAERS Safety Report 10018715 (Version 1)
Quarter: 2014Q1

REPORT INFORMATION
  Report Type: Spontaneous
  Country: US (occurrence: US)
  Receive Date: 20140318
  Receipt Date: 20140318
  Transmission Date: 20141002
  Serious: No
  Sender: FDA-Public Use
  Company Number: US-PFIZER INC-2014076731

PATIENT
  Age: 34 Year
  Sex: Female
  Weight: 104 kg

DRUGS (3)
  1. CHANTIX [Suspect]
     Indication: SMOKING CESSATION THERAPY
     Dosage: UNK
     Dates: start: 201403, end: 201403
  2. CHANTIX [Suspect]
     Dosage: 0.5 MG, 2X/DAY
     Dates: start: 201403
  3. PROTONIX [Concomitant]
     Indication: GASTRIC DISORDER
     Dosage: UNK

REACTIONS (2)
  - Agitation [Not Recovered/Not Resolved]
  - Depression [Not Recovered/Not Resolved]
